FAERS Safety Report 7805332-2 (Version None)
Quarter: 2011Q4

REPORT INFORMATION
  Report Type: 
  Country: None (occurrence: None)
  Receive Date: 20111010
  Receipt Date: 20110927
  Transmission Date: 20120403
  Serious: Yes (Disabling)
  Sender: FDA-Public Use
  Company Number: GB-MYLANLABS-2011S1020333

PATIENT
  Age: 50 Year
  Sex: Male

DRUGS (2)
  1. ENGERIX-B [Suspect]
     Indication: PROPHYLAXIS
     Route: 030
     Dates: start: 20010330, end: 20010330
  2. AZATHIOPRINE [Suspect]
     Indication: PRODUCT USED FOR UNKNOWN INDICATION

REACTIONS (7)
  - DEPRESSION [None]
  - RAYNAUD'S PHENOMENON [None]
  - CUTANEOUS LUPUS ERYTHEMATOSUS [None]
  - ALANINE AMINOTRANSFERASE INCREASED [None]
  - RHEUMATOID ARTHRITIS [None]
  - HYPOKINESIA [None]
  - DIARRHOEA [None]
